FAERS Safety Report 23772458 (Version 1)
Quarter: 2024Q2

REPORT INFORMATION
  Report Type: Spontaneous
  Country: DE (occurrence: DE)
  Receive Date: 20240423
  Receipt Date: 20240423
  Transmission Date: 20240716
  Serious: Yes (Other)
  Sender: FDA-Public Use
  Company Number: DE-BIOCON BIOLOGICS LIMITED-BBL2024002252

PATIENT
  Sex: Female

DRUGS (3)
  1. HYRIMOZ [Suspect]
     Active Substance: ADALIMUMAB-ADAZ
     Indication: Ankylosing spondylitis
     Dosage: UNK
     Route: 065
  2. HULIO [Suspect]
     Active Substance: ADALIMUMAB-FKJP
     Indication: Ankylosing spondylitis
     Dosage: UNK
     Route: 065
  3. HUMIRA [Suspect]
     Active Substance: ADALIMUMAB
     Indication: Ankylosing spondylitis
     Dosage: UNK
     Route: 065

REACTIONS (5)
  - Central nervous system lesion [Unknown]
  - Irritability [Unknown]
  - Optic neuritis [Unknown]
  - Therapeutic product effect incomplete [Unknown]
  - Multiple sclerosis [Unknown]

NARRATIVE: CASE EVENT DATE: 20180101
